FAERS Safety Report 8239773-9 (Version None)
Quarter: 2012Q1

REPORT INFORMATION
  Report Type: 
  Country: None (occurrence: None)
  Receive Date: 20120328
  Receipt Date: 20120319
  Transmission Date: 20120608
  Serious: Yes (Other)
  Sender: FDA-Public Use
  Company Number: RU-JNJFOC-20120305354

PATIENT
  Sex: Female
  Weight: 43 kg

DRUGS (19)
  1. SUPRASTIN [Concomitant]
     Route: 065
     Dates: start: 20110801
  2. REMICADE [Suspect]
     Indication: PRODUCT USED FOR UNKNOWN INDICATION
     Dosage: 3 MG/KG.
     Route: 042
     Dates: start: 20100720
  3. REMICADE [Suspect]
     Dosage: 5 MG/KG.
     Route: 042
     Dates: start: 20111111
  4. SUPRASTIN [Concomitant]
     Route: 065
     Dates: start: 20111111
  5. REMICADE [Suspect]
     Dosage: 5 MG/KG.
     Route: 042
     Dates: start: 20120131
  6. REMICADE [Suspect]
     Dosage: 3 MG/KG.
     Route: 042
     Dates: start: 20100521
  7. SUPRASTIN [Concomitant]
     Indication: PREMEDICATION
     Route: 065
     Dates: start: 20101120
  8. SUPRASTIN [Concomitant]
     Route: 065
     Dates: start: 20100920
  9. SUPRASTIN [Concomitant]
     Route: 065
     Dates: start: 20110415
  10. REMICADE [Suspect]
     Dosage: 5 MG/KG.
     Route: 042
     Dates: start: 20110415
  11. REMICADE [Suspect]
     Dosage: 5 MG/KG.
     Route: 042
     Dates: start: 20110801
  12. SUPRASTIN [Concomitant]
     Route: 065
     Dates: start: 20110127
  13. DEXAMETHASONE [Concomitant]
     Indication: PREMEDICATION
     Route: 065
     Dates: start: 20120131
  14. REMICADE [Suspect]
     Dosage: 3 MG/KG.
     Route: 042
     Dates: start: 20100920
  15. REMICADE [Suspect]
     Dosage: 3 MG/KG.
     Route: 042
     Dates: start: 20100325
  16. REMICADE [Suspect]
     Route: 042
     Dates: start: 20110127
  17. SUPRASTIN [Concomitant]
     Route: 065
     Dates: start: 20100720
  18. SUPRASTIN [Concomitant]
     Route: 065
     Dates: start: 20120131
  19. REMICADE [Suspect]
     Dosage: 5 MG/KG.
     Route: 042
     Dates: start: 20101120

REACTIONS (6)
  - HYPOTENSION [None]
  - DYSPNOEA [None]
  - ACUTE TONSILLITIS [None]
  - ERYTHEMA [None]
  - DRUG EFFECT DECREASED [None]
  - TRANSFUSION REACTION [None]
